FAERS Safety Report 7730226-0 (Version None)
Quarter: 2011Q3

REPORT INFORMATION
  Report Type: 
  Country: None (occurrence: None)
  Receive Date: 20110906
  Receipt Date: 20110831
  Transmission Date: 20111222
  Serious: Yes (Life-Threatening, Hospitalization)
  Sender: FDA-Public Use
  Company Number: PHHY2011JP78295

PATIENT
  Age: 70 Year
  Sex: Male

DRUGS (8)
  1. CONIEL [Concomitant]
     Dosage: 2 MG, QD
     Route: 048
  2. METHYCOBAL [Concomitant]
     Dosage: 1500 UG, QD
     Route: 048
     Dates: start: 20110825, end: 20110826
  3. RIIDAI-MM [Concomitant]
     Route: 048
     Dates: start: 20110524, end: 20110826
  4. EPADEL [Concomitant]
     Dosage: 1800 MG, Q96H
     Route: 048
  5. EPERISONE HYDROCHLORIDE [Concomitant]
     Route: 048
     Dates: start: 20110824, end: 20110826
  6. FAMVIR [Suspect]
     Indication: HERPES ZOSTER
     Dosage: 500MG,TID
     Route: 048
     Dates: start: 20110825, end: 20110826
  7. VITAMIN B-12 [Concomitant]
     Route: 048
     Dates: start: 20110824, end: 20110826
  8. CARVEDILOL [Concomitant]
     Dosage: 10 MG, QD
     Route: 048

REACTIONS (8)
  - TOXIC ENCEPHALOPATHY [None]
  - BLOOD PRESSURE DIASTOLIC INCREASED [None]
  - UNRESPONSIVE TO STIMULI [None]
  - DECREASED EYE CONTACT [None]
  - POSTURE ABNORMAL [None]
  - BLOOD PRESSURE SYSTOLIC INCREASED [None]
  - SPEECH DISORDER [None]
  - MOVEMENT DISORDER [None]
